FAERS Safety Report 15406315 (Version 1)
Quarter: 2018Q3

REPORT INFORMATION
  Report Type: Spontaneous
  Country: DE (occurrence: DE)
  Receive Date: 20180920
  Receipt Date: 20180920
  Transmission Date: 20181010
  Serious: Yes (Hospitalization, Other)
  Sender: FDA-Public Use
  Company Number: DE-HIKMA PHARMACEUTICALS USA INC.-DE-H14001-18-07440

PATIENT
  Age: 75 Year
  Sex: Female
  Weight: 50 kg

DRUGS (17)
  1. CARBOPLATIN. [Suspect]
     Active Substance: CARBOPLATIN
     Indication: OVARIAN CANCER
     Dosage: DAILY DOSE: 374 MG MILLGRAM(S) EVERY 3 WEEKS
     Route: 042
     Dates: start: 20151120
  2. PACLITAXEL. [Suspect]
     Active Substance: PACLITAXEL
     Indication: OVARIAN CANCER
     Dosage: DAILY DOSE: 280 MG MILLGRAM(S) EVERY 3 WEEKS
     Route: 042
     Dates: start: 20160125
  3. RANITIDIN [Concomitant]
     Active Substance: RANITIDINE HYDROCHLORIDE
     Indication: PRODUCT USED FOR UNKNOWN INDICATION
     Route: 042
  4. AVASTIN [Suspect]
     Active Substance: BEVACIZUMAB
     Route: 042
     Dates: start: 20160704, end: 20161219
  5. FENISTIL (GERMANY) [Concomitant]
     Indication: PRODUCT USED FOR UNKNOWN INDICATION
     Route: 042
  6. BELOC?ZOK [Concomitant]
     Active Substance: METOPROLOL SUCCINATE
     Indication: HYPERTENSION
     Route: 048
  7. FORTECORTIN [Concomitant]
     Active Substance: DEXAMETHASONE
     Indication: PRODUCT USED FOR UNKNOWN INDICATION
     Route: 042
  8. CARBOPLATIN. [Suspect]
     Active Substance: CARBOPLATIN
     Dosage: DAILY DOSE: 374 MG MILLGRAM(S) EVERY 3 WEEKS
     Route: 042
     Dates: start: 20151211
  9. PACLITAXEL. [Suspect]
     Active Substance: PACLITAXEL
     Dosage: DAILY DOSE: 280 MG MILLGRAM(S) EVERY 3 WEEKS
     Route: 042
     Dates: start: 20151120
  10. AVASTIN [Suspect]
     Active Substance: BEVACIZUMAB
     Indication: OVARIAN CANCER
     Dosage: DAILY DOSE: 280 MG MILLGRAM(S) EVERY 3 WEEKS
     Route: 042
     Dates: start: 20160216
  11. PACLITAXEL. [Suspect]
     Active Substance: PACLITAXEL
     Dosage: DAILY DOSE: 280 MG MILLGRAM(S) EVERY 3 WEEKS
     Route: 042
     Dates: start: 20160216
  12. PACLITAXEL. [Suspect]
     Active Substance: PACLITAXEL
     Dosage: DAILY DOSE: 280 MG MILLGRAM(S) EVERY 3 WEEKS
     Route: 042
     Dates: start: 20160104
  13. PACLITAXEL. [Suspect]
     Active Substance: PACLITAXEL
     Dosage: DAILY DOSE: 280 MG MILLGRAM(S) EVERY 3 WEEKS
     Route: 042
     Dates: start: 20151211
  14. CARBOPLATIN. [Suspect]
     Active Substance: CARBOPLATIN
     Dosage: DAILY DOSE: 325 MG MILLGRAM(S) EVERY 3 WEEKS
     Route: 042
     Dates: start: 20160104
  15. CARBOPLATIN. [Suspect]
     Active Substance: CARBOPLATIN
     Dosage: DAILY DOSE: 374 MG MILLGRAM(S) EVERY 3 WEEKS
     Route: 042
     Dates: start: 20160216
  16. AVASTIN [Suspect]
     Active Substance: BEVACIZUMAB
     Dosage: DAILY DOSE: 780 MG MILLGRAM(S) EVERY 3 WEEKS
     Route: 042
     Dates: start: 20151211
  17. CARBOPLATIN. [Suspect]
     Active Substance: CARBOPLATIN
     Dosage: DAILY DOSE: 374 MG MILLGRAM(S) EVERY 3 WEEKS
     Route: 042
     Dates: start: 20160125

REACTIONS (5)
  - General physical health deterioration [Recovered/Resolved]
  - Asthenia [Recovered/Resolved]
  - Sleep disorder [Unknown]
  - Hypertensive crisis [Recovered/Resolved]
  - Hypertension [Recovered/Resolved]

NARRATIVE: CASE EVENT DATE: 20151120
